FAERS Safety Report 8816337 (Version 1)
Quarter: 2012Q4

REPORT INFORMATION
  Report Type: Spontaneous
  Country: US (occurrence: None)
  Receive Date: 20120928
  Receipt Date: 20120928
  Transmission Date: 20130627
  Serious: No
  Sender: FDA-Public Use
  Company Number: None

PATIENT
  Age: 56 Year
  Sex: Female
  Weight: 97.52 kg

DRUGS (2)
  1. IMURAN [Suspect]
     Indication: MYASTHENIA GRAVIS
     Route: 048
     Dates: start: 20120614, end: 20120904
  2. IMURAN [Suspect]
     Route: 048

REACTIONS (11)
  - Migraine [None]
  - Nausea [None]
  - Contusion [None]
  - Gastrointestinal pain [None]
  - Pharyngeal haemorrhage [None]
  - Tremor [None]
  - Chills [None]
  - Heart rate increased [None]
  - Hyperhidrosis [None]
  - Night sweats [None]
  - Body temperature increased [None]
